FAERS Safety Report 24031126 (Version 1)
Quarter: 2024Q2

REPORT INFORMATION
  Report Type: Report from Study
  Country: US (occurrence: US)
  Receive Date: 20240628
  Receipt Date: 20240628
  Transmission Date: 20240716
  Serious: Yes (Other)
  Sender: FDA-Public Use
  Company Number: US-ABBVIE-5817453

PATIENT
  Sex: Female

DRUGS (2)
  1. SKYRIZI [Suspect]
     Active Substance: RISANKIZUMAB-RZAA
     Indication: Psoriasis
     Route: 058
     Dates: start: 20240101, end: 20240101
  2. SKYRIZI [Suspect]
     Active Substance: RISANKIZUMAB-RZAA
     Route: 058
     Dates: start: 20240407

REACTIONS (5)
  - Hernia [Recovering/Resolving]
  - Pruritus [Unknown]
  - Visual impairment [Unknown]
  - Eye allergy [Unknown]
  - Eye infection viral [Unknown]

NARRATIVE: CASE EVENT DATE: 20240101
